FAERS Safety Report 4839565-4 (Version None)
Quarter: 2005Q4

REPORT INFORMATION
  Report Type: 
  Country: None (occurrence: None)
  Receive Date: 20051129
  Receipt Date: 20050908
  Transmission Date: 20060501
  Serious: Yes (Hospitalization, Disabling)
  Sender: FDA-Public Use
  Company Number: US-MERCK-0509USA01205

PATIENT
  Age: 51 Year
  Sex: Male
  Weight: 114 kg

DRUGS (5)
  1. VIOXX [Suspect]
     Indication: ARTHRITIS
     Route: 048
     Dates: start: 20001122, end: 20040701
  2. VIOXX [Suspect]
     Indication: MUSCULOSKELETAL PAIN
     Route: 048
     Dates: start: 20001122, end: 20040701
  3. NAPROXEN [Concomitant]
     Indication: PAIN
     Route: 065
     Dates: start: 19930101, end: 20000101
  4. DAYPRO [Concomitant]
     Route: 065
     Dates: start: 19990101, end: 20000101
  5. CENTRUM [Concomitant]
     Route: 065

REACTIONS (10)
  - ASTHMA [None]
  - BLOOD CHOLESTEROL INCREASED [None]
  - BLOOD TRIGLYCERIDES INCREASED [None]
  - CARDIAC DISORDER [None]
  - CORONARY ARTERY DISEASE [None]
  - HYPERGLYCAEMIA [None]
  - HYPERTENSION [None]
  - MYOCARDIAL INFARCTION [None]
  - PALPITATIONS [None]
  - SQUAMOUS CELL CARCINOMA OF SKIN [None]
